FAERS Safety Report 11043166 (Version 1)
Quarter: 2015Q2

REPORT INFORMATION
  Report Type: Spontaneous
  Country: NO (occurrence: NO)
  Receive Date: 20150417
  Receipt Date: 20150417
  Transmission Date: 20150821
  Serious: Yes (Other)
  Sender: FDA-Public Use
  Company Number: NO-ROCHE-1563910

PATIENT
  Age: 23 Year
  Sex: Male

DRUGS (2)
  1. RIVOTRIL [Suspect]
     Active Substance: CLONAZEPAM
     Indication: PRODUCT USED FOR UNKNOWN INDICATION
     Dosage: 50 TABLETS
     Route: 065
  2. AMPHETAMINE [Concomitant]
     Active Substance: AMPHETAMINE

REACTIONS (5)
  - Antisocial behaviour [Unknown]
  - Aggression [Unknown]
  - Memory impairment [Unknown]
  - Homicide [Unknown]
  - Intentional product misuse [Unknown]
